FAERS Safety Report 16321135 (Version 4)
Quarter: 2019Q3

REPORT INFORMATION
  Report Type: Spontaneous
  Country: JP (occurrence: JP)
  Receive Date: 20190516
  Receipt Date: 20190719
  Transmission Date: 20191004
  Serious: Yes (Death, Hospitalization, Other)
  Sender: FDA-Public Use
  Company Number: JP-BRISTOL-MYERS SQUIBB COMPANY-BMS-2019-042258

PATIENT
  Age: 43 Year
  Sex: Male
  Weight: 57.2 kg

DRUGS (1)
  1. OPDIVO [Suspect]
     Active Substance: NIVOLUMAB
     Indication: GASTRIC CANCER
     Dosage: 240 MG, Q2W
     Route: 041
     Dates: start: 20190417

REACTIONS (8)
  - Stomatitis [Not Recovered/Not Resolved]
  - Pyrexia [Unknown]
  - Bile duct stenosis [Recovering/Resolving]
  - Disseminated intravascular coagulation [Fatal]
  - Stevens-Johnson syndrome [Unknown]
  - Mouth haemorrhage [Not Recovered/Not Resolved]
  - Hepatic function abnormal [Recovering/Resolving]
  - Malignant neoplasm progression [Fatal]

NARRATIVE: CASE EVENT DATE: 2019
